FAERS Safety Report 6829795-4 (Version None)
Quarter: 2010Q3

REPORT INFORMATION
  Report Type: 
  Country: None (occurrence: None)
  Receive Date: 20100709
  Receipt Date: 20080416
  Transmission Date: 20110219
  Serious: No
  Sender: FDA-Public Use
  Company Number: US-PFIZER INC-2007010987

PATIENT
  Sex: Female
  Weight: 90.72 kg

DRUGS (8)
  1. CHANTIX [Suspect]
     Indication: SMOKING CESSATION THERAPY
     Dates: start: 20061201, end: 20070101
  2. PLAQUENIL [Concomitant]
     Indication: SYSTEMIC LUPUS ERYTHEMATOSUS
  3. PREDNISONE [Concomitant]
  4. TRAZODONE [Concomitant]
  5. PROTONIX [Concomitant]
  6. NEURONTIN [Concomitant]
  7. PROCARDIA [Concomitant]
  8. ROLAIDS [Concomitant]

REACTIONS (3)
  - DRY MOUTH [None]
  - NAUSEA [None]
  - TREMOR [None]
